FAERS Safety Report 9861375 (Version 1)
Quarter: 2014Q1

REPORT INFORMATION
  Report Type: Spontaneous
  Country: US (occurrence: None)
  Receive Date: 20140131
  Receipt Date: 20140131
  Transmission Date: 20141002
  Serious: Yes (Disabling)
  Sender: FDA-Public Use
  Company Number: None

PATIENT
  Age: 46 Year
  Sex: Female
  Weight: 77.11 kg

DRUGS (7)
  1. VIMPAT [Suspect]
     Indication: CONVULSION
     Dosage: 50 MG  1 PILL  TWICE DAILY  BY MOUTH
     Route: 048
     Dates: start: 20140101, end: 20140108
  2. CYMBALTA [Concomitant]
  3. METOPROLOL [Concomitant]
  4. CALCIUM PLUS D [Concomitant]
  5. B-100 COMPLEX [Concomitant]
  6. MAGNESIUM [Concomitant]
  7. FLORAGEN [Concomitant]

REACTIONS (4)
  - Blood pressure increased [None]
  - Heart rate increased [None]
  - Headache [None]
  - Gait disturbance [None]
